FAERS Safety Report 23756855 (Version 1)
Quarter: 2024Q2

REPORT INFORMATION
  Report Type: Spontaneous
  Country: CN (occurrence: None)
  Receive Date: 20240418
  Receipt Date: 20240418
  Transmission Date: 20240716
  Serious: Yes (Hospitalization)
  Sender: FDA-Public Use
  Company Number: 2024A089161

PATIENT
  Age: 1612 Day
  Sex: Male

DRUGS (3)
  1. BUDESONIDE [Suspect]
     Active Substance: BUDESONIDE
     Indication: Obstructive airways disorder
     Route: 055
     Dates: start: 20240329, end: 20240401
  2. TERBUTALINE SULFATE [Suspect]
     Active Substance: TERBUTALINE SULFATE
     Indication: Bronchial hyperreactivity
     Route: 055
     Dates: start: 20240329, end: 20240401
  3. SODIUM CHLORIDE [Concomitant]
     Active Substance: SODIUM CHLORIDE

REACTIONS (3)
  - Hypersensitivity [Recovered/Resolved]
  - Cheilitis [Unknown]
  - Cough [Unknown]

NARRATIVE: CASE EVENT DATE: 20240401
